FAERS Safety Report 9901693 (Version 2)
Quarter: 2014Q1

REPORT INFORMATION
  Report Type: Spontaneous
  Country: JP (occurrence: JP)
  Receive Date: 20140217
  Receipt Date: 20140217
  Transmission Date: 20141002
  Serious: Yes (Death, Hospitalization)
  Sender: FDA-Public Use
  Company Number: PHHY2014JP009468

PATIENT
  Age: 60 Year
  Sex: Male

DRUGS (2)
  1. NEORAL [Suspect]
     Indication: RENAL TRANSPLANT
     Route: 048
  2. SANDIMMUN [Suspect]
     Indication: RENAL TRANSPLANT
     Route: 065

REACTIONS (2)
  - Neoplasm malignant [Fatal]
  - Oral administration complication [Unknown]
